FAERS Safety Report 9391002 (Version 3)
Quarter: 2013Q3

REPORT INFORMATION
  Report Type: Report from Study
  Country: DE (occurrence: DE)
  Receive Date: 20130709
  Receipt Date: 20130924
  Transmission Date: 20140515
  Serious: Yes (Other)
  Sender: FDA-Public Use
  Company Number: DE-SHIRE-SPV1-2009-01646

PATIENT
  Sex: 0

DRUGS (4)
  1. IDURSULFASE [Suspect]
     Indication: MUCOPOLYSACCHARIDOSIS II
     Dosage: 12 MG, 1X/WEEK
     Route: 041
     Dates: start: 20090217
  2. IDURSULFASE [Suspect]
     Dosage: 0.56 MG/KG, 1X/WEEK
     Route: 041
     Dates: start: 20090217
  3. FENISTIL [Concomitant]
     Indication: PREMEDICATION
     Dosage: 2 MG, AS REQ^D
     Route: 042
     Dates: start: 20090308
  4. PREDNISOLONE [Concomitant]
     Indication: PREMEDICATION
     Dosage: 50 MG, AS REQ^D
     Route: 042
     Dates: start: 20090308

REACTIONS (2)
  - Anaphylactoid reaction [Recovered/Resolved]
  - Infusion related reaction [Recovered/Resolved]
